FAERS Safety Report 5361265-5 (Version None)
Quarter: 2007Q2

REPORT INFORMATION
  Report Type: 
  Country: None (occurrence: None)
  Receive Date: 20070614
  Receipt Date: 20070531
  Transmission Date: 20071010
  Serious: Yes (Life-Threatening, Hospitalization)
  Sender: FDA-Public Use
  Company Number: 150003L07JPN

PATIENT
  Age: 25 Year
  Sex: Female

DRUGS (3)
  1. CHORIONIC GONADOTROPIN [Suspect]
     Indication: IN VITRO FERTILISATION
  2. MENOTROPINS [Suspect]
     Indication: IN VITRO FERTILISATION
  3. UROFOLLITROPIN [Suspect]
     Indication: IN VITRO FERTILISATION

REACTIONS (8)
  - ANAEMIA [None]
  - ASCITES [None]
  - OVARIAN HAEMORRHAGE [None]
  - OVARIAN HYPERSTIMULATION SYNDROME [None]
  - OVARIAN NECROSIS [None]
  - OVARIAN RUPTURE [None]
  - OVARIAN TORSION [None]
  - PRIMIPAROUS [None]
